FAERS Safety Report 10857826 (Version 7)
Quarter: 2015Q3

REPORT INFORMATION
  Report Type: Spontaneous
  Country: US (occurrence: US)
  Receive Date: 20150223
  Receipt Date: 20150721
  Transmission Date: 20151125
  Serious: Yes (Hospitalization, Other)
  Sender: FDA-Public Use
  Company Number: US-UNITED THERAPEUTICS-UNT-2015-001867

PATIENT
  Age: 64 Year
  Sex: Female
  Weight: 116.55 kg

DRUGS (3)
  1. ADCIRCA [Concomitant]
     Active Substance: TADALAFIL
     Indication: PRODUCT USED FOR UNKNOWN INDICATION
  2. REMODULIN [Suspect]
     Active Substance: TREPROSTINIL
     Indication: PULMONARY HYPERTENSION
     Dosage: 0.0615 ?G/KG, CONTINUING
     Route: 041
     Dates: start: 20110505
  3. REMODULIN [Suspect]
     Active Substance: TREPROSTINIL
     Indication: PULMONARY ARTERIAL HYPERTENSION
     Dosage: 0.0615 ?G/KG, CONTINUING
     Route: 041
     Dates: start: 20110609

REACTIONS (12)
  - Fluid retention [Unknown]
  - Syncope [Unknown]
  - Pulmonary arterial pressure increased [Unknown]
  - Cardiac failure [Unknown]
  - Pleural effusion [Unknown]
  - Drug dose omission [Recovered/Resolved]
  - Device dislocation [Recovered/Resolved]
  - Dyspnoea [Unknown]
  - Peritoneal dialysis [Unknown]
  - Haemodialysis [Unknown]
  - Thrombosis in device [Recovered/Resolved]
  - Device leakage [Unknown]

NARRATIVE: CASE EVENT DATE: 20150213
